FAERS Safety Report 12607486 (Version 1)
Quarter: 2016Q3

REPORT INFORMATION
  Report Type: Report from Study
  Country: CL (occurrence: CL)
  Receive Date: 20160729
  Receipt Date: 20160729
  Transmission Date: 20161109
  Serious: Yes (Other)
  Sender: FDA-Public Use
  Company Number: CL-ABBVIE-16K-034-1686003-00

PATIENT
  Age: 24 Year
  Sex: Male

DRUGS (2)
  1. CRONUS [Concomitant]
     Indication: PRODUCT USED FOR UNKNOWN INDICATION
  2. HUMIRA [Suspect]
     Active Substance: ADALIMUMAB
     Indication: RHEUMATOID ARTHRITIS
     Route: 058
     Dates: start: 20140801, end: 201512

REACTIONS (5)
  - Pain [Not Recovered/Not Resolved]
  - Haematochezia [Recovering/Resolving]
  - Weight decreased [Not Recovered/Not Resolved]
  - Blood urine present [Recovering/Resolving]
  - Nausea [Recovering/Resolving]

NARRATIVE: CASE EVENT DATE: 201607
